FAERS Safety Report 6308838-0 (Version None)
Quarter: 2009Q3

REPORT INFORMATION
  Report Type: 
  Country: None (occurrence: None)
  Receive Date: 20090813
  Receipt Date: 20081205
  Transmission Date: 20100115
  Serious: No
  Sender: FDA-Public Use
  Company Number: US-ALLERGAN-0815461US

PATIENT
  Sex: Female

DRUGS (1)
  1. COMBIGAN [Suspect]
     Indication: BORDERLINE GLAUCOMA
     Dosage: UNK, UNKNOWN
     Route: 047

REACTIONS (2)
  - LACRIMATION INCREASED [None]
  - OCULAR HYPERAEMIA [None]
